FAERS Safety Report 19010014 (Version 1)
Quarter: 2021Q1

REPORT INFORMATION
  Report Type: Spontaneous
  Country: DE (occurrence: DE)
  Receive Date: 20210316
  Receipt Date: 20210316
  Transmission Date: 20210420
  Serious: Yes (Hospitalization)
  Sender: FDA-Public Use
  Company Number: DE-TEVA-2021-DE-1890255

PATIENT
  Age: 83 Year
  Sex: Male

DRUGS (2)
  1. PHENPROCOUMON [Concomitant]
     Active Substance: PHENPROCOUMON
     Dosage: BY VALUE
  2. BISOPROLOL [Suspect]
     Active Substance: BISOPROLOL
     Dosage: 2.5 MILLIGRAM DAILY; 1?0?0?0

REACTIONS (6)
  - Disorientation [Unknown]
  - Hypotension [Unknown]
  - Confusional state [Unknown]
  - General physical health deterioration [Unknown]
  - Fall [Unknown]
  - Depressed level of consciousness [Unknown]
